FAERS Safety Report 18812203 (Version 1)
Quarter: 2021Q1

REPORT INFORMATION
  Report Type: Spontaneous
  Country: CN (occurrence: CN)
  Receive Date: 20210129
  Receipt Date: 20210129
  Transmission Date: 20210419
  Serious: Yes (Other)
  Sender: FDA-Public Use
  Company Number: CN-BAXTER-2021BAX001833

PATIENT
  Age: 58 Year
  Sex: Female
  Weight: 53 kg

DRUGS (17)
  1. 5% GLUCOSE  INJECTION [Suspect]
     Active Substance: DEXTROSE
     Indication: MEDICATION DILUTION
     Dosage: (DAY 2) DOXORUBICIN HYDROCHLORIDE LIPOSOME (SELF?PREPARED) 40 MG + 5% GS 250 ML
     Route: 041
     Dates: start: 20201114, end: 20201114
  2. DOXORUBICIN HYDROCHLORIDE LIPOSOME [Suspect]
     Active Substance: DOXORUBICIN HYDROCHLORIDE
     Indication: DIFFUSE LARGE B-CELL LYMPHOMA
     Dosage: (DAY 2) DOXORUBICIN HYDROCHLORIDE LIPOSOME (SELF?PREPARED) 40 MG + 5% GS 250 ML
     Route: 041
     Dates: start: 20201114, end: 20201114
  3. SODIUM CHLORIDE. [Suspect]
     Active Substance: SODIUM CHLORIDE
     Dosage: (DAY 2); ENDOXAN 1.1 G + SODIUM CHLORIDE 100 ML
     Route: 041
     Dates: start: 20201114, end: 20201114
  4. VINDESINE SULFATE [Suspect]
     Active Substance: VINDESINE SULFATE
     Indication: METASTASES TO BONE
  5. ENDOXAN [Suspect]
     Active Substance: CYCLOPHOSPHAMIDE
     Indication: DIFFUSE LARGE B-CELL LYMPHOMA
     Dosage: (DAY 2); ENDOXAN 1.1 G + SODIUM CHLORIDE 100 ML
     Route: 041
     Dates: start: 20201114, end: 20201114
  6. DOXORUBICIN HYDROCHLORIDE LIPOSOME [Suspect]
     Active Substance: DOXORUBICIN HYDROCHLORIDE
     Indication: METASTASES TO BONE MARROW
  7. ENDOXAN [Suspect]
     Active Substance: CYCLOPHOSPHAMIDE
     Indication: METASTASES TO BONE
  8. VINDESINE SULFATE [Suspect]
     Active Substance: VINDESINE SULFATE
     Indication: METASTASES TO BONE MARROW
  9. VINDESINE SULFATE [Suspect]
     Active Substance: VINDESINE SULFATE
     Indication: DIFFUSE LARGE B-CELL LYMPHOMA
     Dosage: DOSAGE FORM: FREEZE?DRIED POWDER; (DAY 2); VINDESINE SULFATE 4 MG + SODIUM CHLORIDE 40 ML
     Route: 042
     Dates: start: 20201114, end: 20201114
  10. DOXORUBICIN HYDROCHLORIDE LIPOSOME [Suspect]
     Active Substance: DOXORUBICIN HYDROCHLORIDE
     Indication: METASTASES TO BONE
  11. SODIUM CHLORIDE. [Suspect]
     Active Substance: SODIUM CHLORIDE
     Dosage: (DAY 1); MABTHERA 0.5 G + SODIUM CHLORIDE 450 ML
     Route: 041
     Dates: start: 20201113, end: 20201113
  12. MABTHERA [Suspect]
     Active Substance: RITUXIMAB
     Indication: DIFFUSE LARGE B-CELL LYMPHOMA
     Dosage: (DAY 1); MABTHERA 0.1 G + SODIUM CHLORIDE 90 ML
     Route: 041
     Dates: start: 20201113, end: 20201113
  13. SODIUM CHLORIDE. [Suspect]
     Active Substance: SODIUM CHLORIDE
     Indication: MEDICATION DILUTION
     Dosage: (DAY 1); MABTHERA 0.1 G + SODIUM CHLORIDE 90 ML
     Route: 041
     Dates: start: 20201113, end: 20201113
  14. ENDOXAN [Suspect]
     Active Substance: CYCLOPHOSPHAMIDE
     Indication: METASTASES TO BONE MARROW
  15. MABTHERA [Suspect]
     Active Substance: RITUXIMAB
     Indication: METASTASES TO BONE MARROW
  16. SODIUM CHLORIDE. [Suspect]
     Active Substance: SODIUM CHLORIDE
     Dosage: (DAY 2); VINDESINE SULFATE 4 MG + SODIUM CHLORIDE 40 ML
     Route: 042
     Dates: start: 20201114, end: 20201114
  17. MABTHERA [Suspect]
     Active Substance: RITUXIMAB
     Indication: METASTASES TO BONE
     Dosage: (DAY 1); MABTHERA 0.5 G + SODIUM CHLORIDE 450 ML
     Route: 041
     Dates: start: 20201113, end: 20201113

REACTIONS (2)
  - Neutrophil count decreased [Recovered/Resolved]
  - White blood cell count decreased [Recovering/Resolving]

NARRATIVE: CASE EVENT DATE: 20201218
